FAERS Safety Report 15253233 (Version 1)
Quarter: 2018Q3

REPORT INFORMATION
  Report Type: Spontaneous
  Country: US (occurrence: US)
  Receive Date: 20180807
  Receipt Date: 20180807
  Transmission Date: 20181010
  Serious: No
  Sender: FDA-Public Use
  Company Number: US-SHIRE-US201825707

PATIENT
  Age: 34 Year
  Sex: Male

DRUGS (1)
  1. GATTEX [Suspect]
     Active Substance: TEDUGLUTIDE\WATER
     Indication: PRODUCT USED FOR UNKNOWN INDICATION
     Dosage: 0.404 UNK, UNK
     Route: 065
     Dates: start: 20180419

REACTIONS (2)
  - Parenteral nutrition [Recovering/Resolving]
  - Gastrointestinal bacterial overgrowth [Recovered/Resolved]

NARRATIVE: CASE EVENT DATE: 20180612
